FAERS Safety Report 7337300-1 (Version None)
Quarter: 2011Q1

REPORT INFORMATION
  Report Type: 
  Country: None (occurrence: None)
  Receive Date: 20110222
  Receipt Date: 20110209
  Transmission Date: 20110831
  Serious: Yes (Death, Other)
  Sender: FDA-Public Use
  Company Number: 2007-01801

PATIENT
  Age: 48 Year
  Sex: Male
  Weight: 84 kg

DRUGS (8)
  1. VELCADE [Suspect]
     Indication: MULTIPLE MYELOMA
     Dosage: 2.60 MG, INTRAVENOUS; 2.00 MG, INTRAVENOUS
     Route: 042
     Dates: start: 20070912, end: 20071106
  2. VELCADE [Suspect]
     Indication: MULTIPLE MYELOMA
     Dosage: 2.60 MG, INTRAVENOUS; 2.00 MG, INTRAVENOUS
     Route: 042
     Dates: start: 20070129, end: 20070222
  3. DEXAMETHASONE [Suspect]
     Indication: MULTIPLE MYELOMA
     Dosage: 20.00 MG, INTRAVENOUS
     Route: 042
     Dates: start: 20070129, end: 20071107
  4. ROXATIDINE ACETATE HCL [Concomitant]
  5. DIFLUCAN [Concomitant]
  6. COTRIM [Concomitant]
  7. URSO 250 [Concomitant]
  8. ALLOPURINOL [Concomitant]

REACTIONS (8)
  - CAPILLARY LEAK SYNDROME [None]
  - MULTIPLE MYELOMA [None]
  - LYMPHOCYTE COUNT DECREASED [None]
  - WHITE BLOOD CELL COUNT DECREASED [None]
  - INTERSTITIAL LUNG DISEASE [None]
  - NEUROPATHY PERIPHERAL [None]
  - PLEURAL EFFUSION [None]
  - DISEASE PROGRESSION [None]
